FAERS Safety Report 6924354-7 (Version None)
Quarter: 2010Q3

REPORT INFORMATION
  Report Type: 
  Country: None (occurrence: None)
  Receive Date: 20100811
  Receipt Date: 20100811
  Transmission Date: 20110219
  Serious: Yes (Other)
  Sender: FDA-Public Use
  Company Number: None

PATIENT
  Sex: Female
  Weight: 76.1589 kg

DRUGS (11)
  1. CEFTIN [Suspect]
     Indication: SINUSITIS
     Dosage: 250 MG PO BID X10D
     Route: 048
     Dates: start: 20080125, end: 20080201
  2. ZOLOFT [Concomitant]
  3. WELLBUTRIN [Concomitant]
  4. ALBUTEROL [Concomitant]
  5. ZYRTEC [Concomitant]
  6. NASONEX [Concomitant]
  7. METFORMIN HCL [Concomitant]
  8. YAZ [Concomitant]
  9. FLOVENT [Concomitant]
  10. SPIRONOLACTONE [Concomitant]
  11. ENTEX CAP [Concomitant]

REACTIONS (2)
  - DIZZINESS [None]
  - PRESYNCOPE [None]
